FAERS Safety Report 5722550-8 (Version None)
Quarter: 2008Q2

REPORT INFORMATION
  Report Type: 
  Country: None (occurrence: None)
  Receive Date: 20080429
  Receipt Date: 20071019
  Transmission Date: 20081010
  Serious: Yes (Other)
  Sender: FDA-Public Use
  Company Number: US-ASTRAZENECA-2007UW21146

PATIENT
  Age: 57 Year
  Sex: Female
  Weight: 68 kg

DRUGS (2)
  1. NEXIUM [Suspect]
     Indication: DYSPEPSIA
     Route: 048
     Dates: start: 20070824
  2. ALBUTEROL [Concomitant]

REACTIONS (2)
  - DERMATITIS ALLERGIC [None]
  - STEVENS-JOHNSON SYNDROME [None]
